FAERS Safety Report 10845708 (Version 1)
Quarter: 2015Q1

REPORT INFORMATION
  Report Type: Spontaneous
  Country: US (occurrence: US)
  Receive Date: 20150220
  Receipt Date: 20150220
  Transmission Date: 20150721
  Serious: No
  Sender: FDA-Public Use
  Company Number: US-ABBVIE-14P-163-1314299-00

PATIENT
  Sex: Female

DRUGS (4)
  1. CIMZIA [Concomitant]
     Active Substance: CERTOLIZUMAB PEGOL
     Indication: PRODUCT USED FOR UNKNOWN INDICATION
     Dates: start: 2005
  2. ENBREL [Concomitant]
     Active Substance: ETANERCEPT
     Indication: ARTHRITIS ENTEROPATHIC
     Dates: start: 2005
  3. SIMPONI [Concomitant]
     Active Substance: GOLIMUMAB
     Indication: ARTHRITIS ENTEROPATHIC
     Dates: start: 2005
  4. HUMIRA [Suspect]
     Active Substance: ADALIMUMAB
     Indication: ARTHRITIS ENTEROPATHIC
     Route: 065

REACTIONS (2)
  - Drug ineffective [Unknown]
  - Injection site pain [Unknown]
